FAERS Safety Report 9300920 (Version 1)
Quarter: 2013Q2

REPORT INFORMATION
  Report Type: Spontaneous
  Country: US (occurrence: None)
  Receive Date: 20130520
  Receipt Date: 20130520
  Transmission Date: 20140414
  Serious: Yes (Life-Threatening, Hospitalization)
  Sender: FDA-Public Use
  Company Number: None

PATIENT
  Age: 56 Year
  Sex: Female

DRUGS (2)
  1. HALOPERIDOL DECANOATE [Suspect]
     Indication: SCHIZOPHRENIA, PARANOID TYPE
     Dosage: Q28 DAYS
     Route: 030
     Dates: start: 20120614, end: 20130418
  2. DONEPEZIL [Suspect]
     Indication: DEMENTIA
     Route: 048
     Dates: start: 20130418, end: 20130517

REACTIONS (14)
  - Antipsychotic drug level above therapeutic [None]
  - Pallor [None]
  - Malaise [None]
  - Abnormal behaviour [None]
  - Blunted affect [None]
  - Decreased appetite [None]
  - Drooling [None]
  - Neuroleptic malignant syndrome [None]
  - Rhabdomyolysis [None]
  - Drug interaction [None]
  - Nausea [None]
  - Vomiting [None]
  - Hypophagia [None]
  - Dehydration [None]
